FAERS Safety Report 6637797-6 (Version None)
Quarter: 2010Q1

REPORT INFORMATION
  Report Type: 
  Country: None (occurrence: None)
  Receive Date: 20100317
  Receipt Date: 20090211
  Transmission Date: 20100710
  Serious: Yes (Life-Threatening, Hospitalization)
  Sender: FDA-Public Use
  Company Number: US-SANOFI-AVENTIS-200717253GDDC

PATIENT
  Age: 68 Year
  Sex: Male
  Weight: 101.8 kg

DRUGS (10)
  1. DOCETAXEL [Suspect]
     Dosage: DOSE UNIT: 70 MG/M**2
     Route: 042
     Dates: start: 20070726, end: 20070726
  2. DOCETAXEL [Suspect]
     Route: 042
     Dates: start: 20070523, end: 20070523
  3. OXALIPLATIN [Suspect]
     Dosage: DOSE UNIT: 100 MG/M**2
     Route: 042
     Dates: start: 20070726, end: 20070726
  4. OXALIPLATIN [Suspect]
     Route: 042
     Dates: start: 20070523, end: 20070523
  5. BEVACIZUMAB [Suspect]
     Dosage: DOSE UNIT: 15 MG/KG
     Route: 042
     Dates: start: 20070705, end: 20070705
  6. BEVACIZUMAB [Suspect]
     Route: 042
     Dates: start: 20070523, end: 20070523
  7. LISINOPRIL [Concomitant]
  8. METHADONE HYDROCHLORIDE [Concomitant]
  9. LYRICA [Concomitant]
  10. NEULASTA [Concomitant]
     Dosage: DOSE AS USED: 6 MG WITH EACH CYCLE

REACTIONS (3)
  - ANAEMIA [None]
  - HYPONATRAEMIA [None]
  - LARGE INTESTINE PERFORATION [None]
